FAERS Safety Report 19034105 (Version 6)
Quarter: 2023Q2

REPORT INFORMATION
  Report Type: Report from Study
  Country: US (occurrence: US)
  Receive Date: 20210319
  Receipt Date: 20230627
  Transmission Date: 20230721
  Serious: Yes (Other)
  Sender: FDA-Public Use
  Company Number: US-TAKEDA-US202006151

PATIENT
  Age: 29 Year
  Sex: Female
  Weight: 90 kg

DRUGS (21)
  1. VELAGLUCERASE ALFA [Suspect]
     Active Substance: VELAGLUCERASE ALFA
     Indication: Gaucher^s disease
     Dosage: 4400 INTERNATIONAL UNIT, 1/WEEK
     Route: 042
     Dates: start: 20170809
  2. VELAGLUCERASE ALFA [Suspect]
     Active Substance: VELAGLUCERASE ALFA
     Indication: Psoriasis
     Dosage: 5600 INTERNATIONAL UNIT, 1/WEEK
     Route: 042
     Dates: start: 20170810
  3. VELAGLUCERASE ALFA [Suspect]
     Active Substance: VELAGLUCERASE ALFA
     Indication: Rheumatoid arthritis
     Dosage: 5600 INTERNATIONAL UNIT, 1/WEEK
     Route: 042
     Dates: start: 20170811
  4. DIPHENHYDRAMINE [Concomitant]
     Active Substance: DIPHENHYDRAMINE
     Indication: Product used for unknown indication
     Dosage: UNK
     Route: 065
  5. SODIUM CHLORIDE [Concomitant]
     Active Substance: SODIUM CHLORIDE
     Indication: Product used for unknown indication
     Dosage: UNK
     Route: 065
  6. SODIUM CHLORIDE [Concomitant]
     Active Substance: SODIUM CHLORIDE
     Indication: Product used for unknown indication
     Dosage: UNK
     Route: 065
  7. STERILE WATER [Concomitant]
     Active Substance: WATER
     Indication: Product used for unknown indication
     Dosage: UNK
     Route: 065
  8. EPINEPHRINE [Concomitant]
     Active Substance: EPINEPHRINE
     Indication: Product used for unknown indication
     Dosage: UNK
     Route: 065
  9. XELJANZ [Concomitant]
     Active Substance: TOFACITINIB CITRATE
     Indication: Product used for unknown indication
     Dosage: UNK
     Route: 065
  10. FOLIC ACID [Concomitant]
     Active Substance: FOLIC ACID
     Indication: Product used for unknown indication
     Dosage: UNK
     Route: 065
  11. METHOTREXATE [Concomitant]
     Active Substance: METHOTREXATE
     Indication: Product used for unknown indication
     Dosage: UNK
     Route: 065
  12. POTASSIUM [Concomitant]
     Active Substance: POTASSIUM
     Dosage: UNK
     Route: 065
  13. HUMIRA [Concomitant]
     Active Substance: ADALIMUMAB
     Dosage: UNK
     Route: 065
  14. DRISDOL [Concomitant]
     Active Substance: ERGOCALCIFEROL
     Route: 065
  15. LEFLUNOMIDE [Concomitant]
     Active Substance: LEFLUNOMIDE
     Route: 065
  16. RINVOQ [Concomitant]
     Active Substance: UPADACITINIB
     Route: 065
  17. HEPARIN [Concomitant]
     Active Substance: HEPARIN SODIUM
  18. EPINEPHRINE [Concomitant]
     Active Substance: EPINEPHRINE
  19. IBUPROFEN [Concomitant]
     Active Substance: IBUPROFEN
  20. LEXAPRO [Concomitant]
     Active Substance: ESCITALOPRAM OXALATE
  21. LIDOCAINE [Concomitant]
     Active Substance: LIDOCAINE

REACTIONS (12)
  - Plasma cell myeloma [Unknown]
  - Rheumatoid arthritis [Recovered/Resolved]
  - Synovial rupture [Unknown]
  - Swelling [Not Recovered/Not Resolved]
  - Migraine [Unknown]
  - Sinusitis [Unknown]
  - Disease progression [Unknown]
  - Application site vesicles [Recovered/Resolved]
  - Joint stiffness [Recovered/Resolved]
  - Vomiting [Unknown]
  - Abdominal pain upper [Unknown]
  - Product storage error [Unknown]

NARRATIVE: CASE EVENT DATE: 20210307
